FAERS Safety Report 24823611 (Version 1)
Quarter: 2025Q1

REPORT INFORMATION
  Report Type: Spontaneous
  Country: US (occurrence: US)
  Receive Date: 20250109
  Receipt Date: 20250109
  Transmission Date: 20250408
  Serious: No
  Sender: AMGEN
  Company Number: US-AMGEN-USASP2025003449

PATIENT
  Sex: Male

DRUGS (19)
  1. OTEZLA [Suspect]
     Active Substance: APREMILAST
     Indication: Psoriasis
     Dosage: 30 MILLIGRAM, BID
     Route: 048
     Dates: start: 20200901
  2. PREDNISONE [Suspect]
     Active Substance: PREDNISONE
     Indication: Product used for unknown indication
     Route: 065
  3. ALBUTEROL SULFATE [Concomitant]
     Active Substance: ALBUTEROL SULFATE
  4. ALPRAZOLAM [Concomitant]
     Active Substance: ALPRAZOLAM
  5. ASPIRIN [Concomitant]
     Active Substance: ASPIRIN
  6. CIALIS [Concomitant]
     Active Substance: TADALAFIL
  7. CLOBETASOL [Concomitant]
     Active Substance: CLOBETASOL
  8. DEXAMETHASONE SODIUM PHOSPHATE [Concomitant]
     Active Substance: DEXAMETHASONE SODIUM PHOSPHATE
  9. ESCITALOPRAM [Concomitant]
     Active Substance: ESCITALOPRAM OXALATE
  10. HYDROCORTISONE [Concomitant]
     Active Substance: HYDROCORTISONE
  11. LOSARTAN POTASSIUM [Concomitant]
     Active Substance: LOSARTAN POTASSIUM
  12. MELOXICAM [Concomitant]
     Active Substance: MELOXICAM
  13. OXYCODONE [Concomitant]
     Active Substance: OXYCODONE
  14. PROPECIA [Concomitant]
     Active Substance: FINASTERIDE
  15. ROSUVASTATIN [Concomitant]
     Active Substance: ROSUVASTATIN
  16. SHINGRIX [Concomitant]
     Active Substance: RECOMBINANT VARICELLA ZOSTER VIRUS (VZV) GLYCOPROTEIN E
  17. TACROLIMUS [Concomitant]
     Active Substance: TACROLIMUS
  18. TADALAFIL [Concomitant]
     Active Substance: TADALAFIL
  19. Triamcinolon [Concomitant]

REACTIONS (2)
  - Therapy non-responder [Unknown]
  - Product dose omission issue [Unknown]
